FAERS Safety Report 17827111 (Version 1)
Quarter: 2020Q2

REPORT INFORMATION
  Report Type: Spontaneous
  Country: DE (occurrence: DE)
  Receive Date: 20200526
  Receipt Date: 20200526
  Transmission Date: 20200714
  Serious: Yes (Death)
  Sender: FDA-Public Use
  Company Number: DE-CELLTRION INC.-2020DE022602

PATIENT

DRUGS (3)
  1. RITUXIMAB (UNKNOWN) [Suspect]
     Active Substance: RITUXIMAB
     Indication: PEMPHIGUS
     Dosage: 1000 MG EVERY 2 WEEKS (TWO INFUSIONS)
     Route: 042
  2. BORTEZOMIB. [Suspect]
     Active Substance: BORTEZOMIB
     Indication: PEMPHIGUS
     Dosage: UNK
     Route: 065
  3. RITUXIMAB (UNKNOWN) [Suspect]
     Active Substance: RITUXIMAB
     Dosage: 375 MG/M2 EVERY WEEK (FOUR INFUSIONS)
     Route: 042

REACTIONS (5)
  - Off label use [Unknown]
  - Intentional product use issue [Unknown]
  - Urinary tract infection [Fatal]
  - Gangrene [Fatal]
  - Septic shock [Fatal]
